FAERS Safety Report 17065847 (Version 8)
Quarter: 2021Q2

REPORT INFORMATION
  Report Type: Spontaneous
  Country: PL (occurrence: PL)
  Receive Date: 20191122
  Receipt Date: 20210426
  Transmission Date: 20210716
  Serious: Yes (Hospitalization, Disabling, Other)
  Sender: FDA-Public Use
  Company Number: PL-MYLANLABS-2019M1112189

PATIENT
  Age: 56 Year
  Sex: Female

DRUGS (17)
  1. OMEPRAZOLE. [Interacting]
     Active Substance: OMEPRAZOLE
     Indication: BACK PAIN
     Dosage: 40 MILLIGRAM, QD
     Route: 065
  2. PARACETAMOL [Suspect]
     Active Substance: ACETAMINOPHEN
     Indication: ARTHRALGIA
     Dosage: 2600 MG, QD
  3. CELECOXIB. [Interacting]
     Active Substance: CELECOXIB
     Indication: BACK PAIN
     Dosage: 400 MILLIGRAM, QD
     Route: 065
  4. CELECOXIB. [Interacting]
     Active Substance: CELECOXIB
     Indication: PAIN
  5. CELECOXIB. [Interacting]
     Active Substance: CELECOXIB
     Indication: SPINAL PAIN
  6. SERTRALINE [Interacting]
     Active Substance: SERTRALINE HYDROCHLORIDE
     Dosage: 100 MILLIGRAM, MORNINGS ? SINCE ONE YEAR
  7. INDAPAMIDE. [Interacting]
     Active Substance: INDAPAMIDE
     Indication: HYPERTENSION
     Dosage: 1.5 MILLIGRAM, QD (QD, SR)
     Route: 065
  8. CIPROFLOXACIN. [Interacting]
     Active Substance: CIPROFLOXACIN
     Indication: BRONCHITIS
     Dosage: 500 MG, BID
     Route: 048
  9. KETOPROFEN. [Interacting]
     Active Substance: KETOPROFEN
     Indication: PAIN
     Dosage: 300 MG, TID
     Route: 048
  10. FLUOXETINE [Interacting]
     Active Substance: FLUOXETINE HYDROCHLORIDE
     Indication: DEPRESSION
     Dosage: 40 MG, UNK
     Route: 065
  11. HYDROXYZINE [Interacting]
     Active Substance: HYDROXYZINE HYDROCHLORIDE
     Indication: INITIAL INSOMNIA
     Dosage: 25 MILLIGRAM, QD (IN THE EVENING)
     Route: 065
  12. HYDROXYZINE [Interacting]
     Active Substance: HYDROXYZINE HYDROCHLORIDE
     Indication: INSOMNIA
  13. SERTRALINE [Suspect]
     Active Substance: SERTRALINE HYDROCHLORIDE
     Indication: DEPRESSION
     Dosage: 100 MILLIGRAM, QD (100 MG, PER DAY, IN THE MORNING)
     Route: 065
  14. TRAMADOL. [Interacting]
     Active Substance: TRAMADOL
     Indication: ARTHRALGIA
     Dosage: 300 MG, QD
     Route: 065
  15. ENALAPRIL [Interacting]
     Active Substance: ENALAPRIL
     Indication: HYPERTENSION
     Dosage: 20 MILLIGRAM, QD
     Route: 065
  16. TRAZODONE [Interacting]
     Active Substance: TRAZODONE HYDROCHLORIDE
     Indication: INSOMNIA
     Dosage: 75 MG, BEFORE GOING TO SLEEP
     Route: 065
  17. OMEPRAZOLE. [Interacting]
     Active Substance: OMEPRAZOLE
     Indication: SPINAL PAIN

REACTIONS (12)
  - Pain [Recovered/Resolved]
  - Iron deficiency [Unknown]
  - Oral discomfort [Recovered/Resolved]
  - Dysphagia [Recovered/Resolved]
  - Serotonin syndrome [Unknown]
  - Burning mouth syndrome [Recovered/Resolved]
  - Product use in unapproved indication [Unknown]
  - Hypophagia [Recovered/Resolved]
  - Upper gastrointestinal haemorrhage [Unknown]
  - Drug interaction [Recovering/Resolving]
  - Drug ineffective [Unknown]
  - Intentional product misuse [Unknown]
